FAERS Safety Report 17054698 (Version 1)
Quarter: 2019Q4

REPORT INFORMATION
  Report Type: Spontaneous
  Country: CA (occurrence: CA)
  Receive Date: 20191120
  Receipt Date: 20191120
  Transmission Date: 20200122
  Serious: Yes (Disabling)
  Sender: FDA-Public Use
  Company Number: CA-TEVA-2019-CA-1137943

PATIENT
  Age: 42 Year
  Sex: Female

DRUGS (2)
  1. TEVA-PREDNISONE [Suspect]
     Active Substance: PREDNISONE
     Indication: PAIN
     Dosage: 50 MILLIGRAM DAILY;
     Route: 048
  2. ZOPICLONE [Concomitant]
     Active Substance: ZOPICLONE

REACTIONS (3)
  - Somnolence [Recovered/Resolved]
  - Disturbance in attention [Recovered/Resolved]
  - Impaired work ability [Recovered/Resolved]
